FAERS Safety Report 25803266 (Version 2)
Quarter: 2025Q4

REPORT INFORMATION
  Report Type: Spontaneous
  Country: US (occurrence: US)
  Receive Date: 20250915
  Receipt Date: 20251009
  Transmission Date: 20260118
  Serious: No
  Sender: ROCHE
  Company Number: US-ROCHE-10000383244

PATIENT
  Age: 54 Year
  Sex: Male
  Weight: 99.79 kg

DRUGS (2)
  1. XOLAIR [Suspect]
     Active Substance: OMALIZUMAB
     Indication: Rash
     Route: 058
     Dates: start: 202508
  2. XOLAIR [Suspect]
     Active Substance: OMALIZUMAB
     Indication: Pruritus

REACTIONS (4)
  - Off label use [Unknown]
  - Device defective [Unknown]
  - Incorrect dose administered [Unknown]
  - No adverse event [Unknown]

NARRATIVE: CASE EVENT DATE: 20250905
